FAERS Safety Report 7264228-8 (Version None)
Quarter: 2011Q1

REPORT INFORMATION
  Report Type: 
  Country: None (occurrence: None)
  Receive Date: 20110131
  Receipt Date: 20110119
  Transmission Date: 20110831
  Serious: No
  Sender: FDA-Public Use
  Company Number: US-BIOGENIDEC-2011BI002305

PATIENT
  Sex: Female

DRUGS (4)
  1. TREXIMET [Concomitant]
     Indication: MIGRAINE
  2. TYSABRI [Suspect]
     Indication: MULTIPLE SCLEROSIS
     Route: 042
     Dates: start: 20100728
  3. BOTOX [Concomitant]
     Indication: TORTICOLLIS
     Route: 058
  4. OPANA [Concomitant]
     Indication: PAIN IN EXTREMITY

REACTIONS (7)
  - LACRIMATION INCREASED [None]
  - ARTHRALGIA [None]
  - HEADACHE [None]
  - VOMITING [None]
  - INFLUENZA LIKE ILLNESS [None]
  - EAR DISCOMFORT [None]
  - MIGRAINE [None]
